FAERS Safety Report 5923982-5 (Version None)
Quarter: 2008Q4

REPORT INFORMATION
  Report Type: 
  Country: None (occurrence: None)
  Receive Date: 20081020
  Receipt Date: 20081018
  Transmission Date: 20090506
  Serious: Yes (Other)
  Sender: FDA-Public Use
  Company Number: MX-BRISTOL-MYERS SQUIBB COMPANY-14374656

PATIENT
  Age: 43 Year
  Sex: Male

DRUGS (1)
  1. ENTECAVIR TABS [Suspect]
     Indication: HEPATITIS B
     Dosage: DOUBLE DOSES SINCE 2 WEEKS AGO

REACTIONS (1)
  - HEPATITIS B [None]
